FAERS Safety Report 7161713-4 (Version None)
Quarter: 2010Q4

REPORT INFORMATION
  Report Type: 
  Country: None (occurrence: None)
  Receive Date: 20101215
  Receipt Date: 20100622
  Transmission Date: 20110411
  Serious: No
  Sender: FDA-Public Use
  Company Number: US-MYLANLABS-2010S1011395

PATIENT
  Sex: Female

DRUGS (2)
  1. DILTIAZEM HYDROCHLORIDE [Suspect]
     Indication: ANGINA PECTORIS
     Route: 048
  2. XOLAIR [Concomitant]
     Indication: ASTHMA
     Dates: start: 20030101

REACTIONS (3)
  - DYSPNOEA [None]
  - RASH [None]
  - SWOLLEN TONGUE [None]
